FAERS Safety Report 13204337 (Version 5)
Quarter: 2018Q2

REPORT INFORMATION
  Report Type: Spontaneous
  Country: US (occurrence: US)
  Receive Date: 20170209
  Receipt Date: 20180426
  Transmission Date: 20180711
  Serious: Yes (Congenital Anomaly, Other)
  Sender: FDA-Public Use
  Company Number: PHEH2017US004095

PATIENT
  Sex: Female

DRUGS (3)
  1. ZOFRAN [Suspect]
     Active Substance: ONDANSETRON HYDROCHLORIDE
     Indication: FOETAL EXPOSURE DURING PREGNANCY
     Route: 064
  2. ZOFRAN [Suspect]
     Active Substance: ONDANSETRON HYDROCHLORIDE
     Indication: FOETAL EXPOSURE DURING PREGNANCY
     Route: 064
  3. ONDANSETRONE DR. REDDY^S [Suspect]
     Active Substance: ONDANSETRON HYDROCHLORIDE
     Indication: FOETAL EXPOSURE DURING PREGNANCY
     Dosage: MOTHER^S DOSE: 04 MG, TID, 08 MG, QD
     Route: 064

REACTIONS (34)
  - Lung disorder [Unknown]
  - Abdominal distension [Unknown]
  - Univentricular heart [Unknown]
  - Congenital tricuspid valve stenosis [Unknown]
  - Patent ductus arteriosus [Unknown]
  - Pulmonary artery stenosis congenital [Unknown]
  - Pneumothorax [Unknown]
  - Hypoplastic left heart syndrome [Unknown]
  - Right aortic arch [Unknown]
  - Respiratory distress [Unknown]
  - Right ventricular hypertrophy [Unknown]
  - Cardiomegaly [Unknown]
  - Hepatic congestion [Unknown]
  - Foetal exposure during pregnancy [Unknown]
  - Dental caries [Unknown]
  - Mediastinal disorder [Unknown]
  - Atrial septal defect [Unknown]
  - Ventricular hypoplasia [Unknown]
  - Heart disease congenital [Unknown]
  - Ventricular septal defect [Unknown]
  - Wound infection [Unknown]
  - Pulmonary oedema [Unknown]
  - Bronchitis [Unknown]
  - Cardiac ventricular disorder [Unknown]
  - Neonatal hepatomegaly [Unknown]
  - Sinus tachycardia [Unknown]
  - Malpositioned teeth [Unknown]
  - Lung hyperinflation [Unknown]
  - Atelectasis [Recovering/Resolving]
  - Double outlet right ventricle [Unknown]
  - Transposition of the great vessels [Unknown]
  - Pericardial effusion [Unknown]
  - Injury [Unknown]
  - Malocclusion [Unknown]
